FAERS Safety Report 4840723-3 (Version None)
Quarter: 2005Q4

REPORT INFORMATION
  Report Type: 
  Country: None (occurrence: None)
  Receive Date: 20051130
  Receipt Date: 20051123
  Transmission Date: 20060501
  Serious: Yes (Hospitalization, Other)
  Sender: FDA-Public Use
  Company Number: GB-JNJFOC-20051101394

PATIENT
  Sex: Female
  Weight: 78 kg

DRUGS (6)
  1. INFLIXIMAB [Suspect]
     Indication: RHEUMATOID ARTHRITIS
     Route: 042
  2. METHOTREXATE [Concomitant]
     Route: 065
  3. PREDNISOLONE [Concomitant]
     Route: 065
  4. CODEINE [Concomitant]
     Route: 065
  5. FERROUS SULFATE TAB [Concomitant]
     Route: 065
  6. FOLATE [Concomitant]
     Route: 065

REACTIONS (2)
  - BONE CYST [None]
  - FRACTURE [None]
